FAERS Safety Report 16844314 (Version 1)
Quarter: 2019Q3

REPORT INFORMATION
  Report Type: Spontaneous
  Country: US (occurrence: US)
  Receive Date: 20190924
  Receipt Date: 20190924
  Transmission Date: 20191005
  Serious: No
  Sender: FDA-Public Use
  Company Number: US-ALLERGAN-1925448US

PATIENT
  Age: 54 Year
  Sex: Female

DRUGS (2)
  1. SAPHRIS [Suspect]
     Active Substance: ASENAPINE MALEATE
     Indication: SLEEP DISORDER
     Dosage: 10 MG, QD
     Route: 065
  2. UNSPECIFIED LOT OF MEDICATIONS [Concomitant]
     Dosage: UNK

REACTIONS (5)
  - Product dose omission [Unknown]
  - Off label use [Unknown]
  - Eating disorder [Not Recovered/Not Resolved]
  - Insomnia [Not Recovered/Not Resolved]
  - Product packaging quantity issue [Unknown]

NARRATIVE: CASE EVENT DATE: 201906
